FAERS Safety Report 6672853-8 (Version None)
Quarter: 2010Q2

REPORT INFORMATION
  Report Type: 
  Country: None (occurrence: None)
  Receive Date: 20100408
  Receipt Date: 20100326
  Transmission Date: 20101027
  Serious: Yes (Other)
  Sender: FDA-Public Use
  Company Number: PHHY2010JP17733

PATIENT
  Age: 55 Year
  Sex: Male

DRUGS (11)
  1. TEGRETOL [Interacting]
     Indication: EPILEPSY
     Dosage: 200 MG, BID
     Route: 048
     Dates: start: 19630101
  2. IRINOTECAN HYDROCHLORIDE [Interacting]
     Indication: UTERINE CANCER
     Dosage: UNK
     Route: 042
     Dates: start: 20060501
  3. PHENOBARBITAL TAB [Suspect]
     Indication: EPILEPSY
     Dosage: UNK
     Route: 048
     Dates: start: 19630101
  4. NORVASC [Concomitant]
  5. MUCOSTA [Concomitant]
  6. LOXONIN [Concomitant]
  7. GABAPEN [Concomitant]
     Dosage: UNK
  8. FAMOTIDINE [Concomitant]
  9. OXYCONTIN [Concomitant]
  10. FERO-GRADUMET [Concomitant]
  11. MAGMITT [Concomitant]

REACTIONS (5)
  - ANTICONVULSANT DRUG LEVEL DECREASED [None]
  - DRUG INTERACTION [None]
  - EPILEPSY [None]
  - LOSS OF CONSCIOUSNESS [None]
  - UTERINE CANCER [None]
